FAERS Safety Report 20017744 (Version 1)
Quarter: 2021Q4

REPORT INFORMATION
  Report Type: Spontaneous
  Country: None (occurrence: CA)
  Receive Date: 20211031
  Receipt Date: 20211031
  Transmission Date: 20220303
  Serious: Yes (Hospitalization, Other)
  Sender: FDA-Public Use
  Company Number: CA-Canton Laboratories, LLC-2121261

PATIENT
  Sex: Female

DRUGS (1)
  1. NAPROSYN [Suspect]
     Active Substance: NAPROXEN
     Indication: Urinary tract infection
     Route: 065

REACTIONS (5)
  - Gait disturbance [Unknown]
  - Swelling face [Unknown]
  - Eye swelling [Unknown]
  - Dysarthria [Unknown]
  - Asthenia [Unknown]
